FAERS Safety Report 24581926 (Version 1)
Quarter: 2024Q4

REPORT INFORMATION
  Report Type: Spontaneous
  Country: CN (occurrence: CN)
  Receive Date: 20241105
  Receipt Date: 20241105
  Transmission Date: 20250115
  Serious: Yes (Other)
  Sender: EISAI
  Company Number: CN-Eisai-EC-2024-177884

PATIENT
  Age: 45 Year
  Sex: Female

DRUGS (3)
  1. ERIBULIN [Suspect]
     Active Substance: ERIBULIN
     Indication: Breast neoplasm
     Route: 042
     Dates: start: 20240521, end: 20240528
  2. ERIBULIN [Suspect]
     Active Substance: ERIBULIN
     Route: 042
     Dates: start: 20240528, end: 20240528
  3. CAPECITABINE [Concomitant]
     Active Substance: CAPECITABINE
     Indication: Breast neoplasm
     Route: 048
     Dates: start: 20240522, end: 20240605

REACTIONS (1)
  - Myelosuppression [Recovering/Resolving]

NARRATIVE: CASE EVENT DATE: 20240529
